FAERS Safety Report 6775397-8 (Version None)
Quarter: 2010Q2

REPORT INFORMATION
  Report Type: 
  Country: None (occurrence: None)
  Receive Date: 20100520
  Receipt Date: 20090618
  Transmission Date: 20101027
  Serious: Yes (Other)
  Sender: FDA-Public Use
  Company Number: 2008058386

PATIENT
  Age: 66 Year
  Sex: Female
  Weight: 88.4 kg

DRUGS (5)
  1. PROVERA [Suspect]
  2. PREMARIN [Suspect]
     Indication: HORMONE REPLACEMENT THERAPY
     Dates: start: 19750101, end: 19981001
  3. CAPTOPRIL [Concomitant]
  4. PROPRANOLOL [Concomitant]
  5. INDERAL [Concomitant]

REACTIONS (1)
  - BREAST CANCER FEMALE [None]
